FAERS Safety Report 9201563 (Version 1)
Quarter: 2013Q2

REPORT INFORMATION
  Report Type: Spontaneous
  Country: US (occurrence: US)
  Receive Date: 20130401
  Receipt Date: 20130401
  Transmission Date: 20140414
  Serious: Yes (Other)
  Sender: FDA-Public Use
  Company Number: US-PURDUE-USA-2013-0100259

PATIENT
  Age: 60 Year
  Sex: Female

DRUGS (2)
  1. BUTRANS [Suspect]
     Indication: PAIN
     Dosage: 10 MCG/HR, DAILY
     Route: 062
     Dates: start: 20130315
  2. VICODIN [Concomitant]
     Indication: BREAKTHROUGH PAIN
     Dosage: 5 MG, Q4H PRN
     Route: 048

REACTIONS (5)
  - Cholelithiasis [Not Recovered/Not Resolved]
  - Rheumatoid arthritis [Unknown]
  - Joint swelling [Not Recovered/Not Resolved]
  - Arthralgia [Not Recovered/Not Resolved]
  - Inadequate analgesia [Not Recovered/Not Resolved]
